FAERS Safety Report 7151754-5 (Version None)
Quarter: 2010Q4

REPORT INFORMATION
  Report Type: 
  Country: None (occurrence: None)
  Receive Date: 20101124
  Receipt Date: 20101112
  Transmission Date: 20110411
  Serious: Yes (Hospitalization)
  Sender: FDA-Public Use
  Company Number: 2010-3378

PATIENT
  Age: 82 Year
  Sex: Male

DRUGS (19)
  1. DYSPORT [Suspect]
     Indication: MUSCLE CONTRACTURE
     Dosage: 1500 UNITS (1500 UNITS, SINGLE CYCLE), INTRAMUSCULAR
     Route: 030
     Dates: start: 20100804, end: 20100804
  2. DYSPORT [Suspect]
     Indication: OFF LABEL USE
     Dosage: 1500 UNITS (1500 UNITS, SINGLE CYCLE), INTRAMUSCULAR
     Route: 030
     Dates: start: 20100804, end: 20100804
  3. AVODART [Concomitant]
  4. CELEBREX [Concomitant]
  5. DIGOXIN [Concomitant]
  6. LISINOPRIL [Concomitant]
  7. MIRAPEX [Concomitant]
  8. ASPIRIN [Concomitant]
  9. FENTANYL-100 [Concomitant]
  10. NEURONTIN [Concomitant]
  11. LIDODERM [Concomitant]
  12. BACLOFEN [Concomitant]
  13. ROBAXIN [Concomitant]
  14. GLUCOSAMIN WITH CHONDROITIN (GLUCOSAMINE W/CHRONDROITIN) [Concomitant]
  15. LASIX [Concomitant]
  16. CALCIUM WITH VITAMIN D (CALCIUM WITH VITAMIN D) [Concomitant]
  17. SENNA (SENNA ALEXANDRINA) [Concomitant]
  18. LYRICA [Concomitant]
  19. LACTULOSE [Concomitant]

REACTIONS (29)
  - ANAEMIA [None]
  - ATELECTASIS [None]
  - ATRIAL FIBRILLATION [None]
  - BLOOD GLUCOSE INCREASED [None]
  - BLOOD LACTATE DEHYDROGENASE INCREASED [None]
  - BLOOD PH DECREASED [None]
  - BLOOD SODIUM DECREASED [None]
  - CARDIAC FAILURE CONGESTIVE [None]
  - CHEST PAIN [None]
  - CONSTIPATION [None]
  - COUGH [None]
  - DYSPHAGIA [None]
  - DYSPNOEA [None]
  - EFFUSION [None]
  - EMPHYSEMA [None]
  - GENITAL RASH [None]
  - HYPERNATRAEMIA [None]
  - HYPOKALAEMIA [None]
  - HYPOTENSION [None]
  - INSOMNIA [None]
  - MUSCULAR WEAKNESS [None]
  - PERICARDIAL EFFUSION [None]
  - PERONEAL NERVE PALSY [None]
  - PLATELET COUNT INCREASED [None]
  - PLEURAL EFFUSION [None]
  - PNEUMONIA [None]
  - PNEUMOTHORAX [None]
  - PYREXIA [None]
  - RESPIRATORY DISTRESS [None]
